FAERS Safety Report 12296985 (Version 1)
Quarter: 2016Q2

REPORT INFORMATION
  Report Type: Spontaneous
  Country: US (occurrence: US)
  Receive Date: 20160422
  Receipt Date: 20160422
  Transmission Date: 20160815
  Serious: No
  Sender: FDA-Public Use
  Company Number: US-SA-2016SA000056

PATIENT
  Age: 42 Year
  Sex: Female

DRUGS (3)
  1. NOVOLOG [Concomitant]
     Active Substance: INSULIN ASPART
     Dosage: DAOSE 4-6 UNITS
  2. LEVEMIR [Concomitant]
     Active Substance: INSULIN DETEMIR
     Dosage: DOSE:40 UNIT(S)
  3. AFREZZA [Suspect]
     Active Substance: INSULIN HUMAN
     Indication: TYPE 2 DIABETES MELLITUS
     Dosage: DOSE:4 UNIT(S)
     Route: 065
     Dates: start: 20151229

REACTIONS (1)
  - Blood glucose increased [Not Recovered/Not Resolved]

NARRATIVE: CASE EVENT DATE: 20151230
